FAERS Safety Report 14023493 (Version 1)
Quarter: 2017Q3

REPORT INFORMATION
  Report Type: Spontaneous
  Country: US (occurrence: US)
  Receive Date: 20170928
  Receipt Date: 20170928
  Transmission Date: 20171128
  Serious: No
  Sender: FDA-Public Use
  Company Number: US-SA-2016SA215375

PATIENT
  Sex: Male

DRUGS (8)
  1. BACLOFEN. [Concomitant]
     Active Substance: BACLOFEN
  2. ROPINIROLE. [Concomitant]
     Active Substance: ROPINIROLE
  3. CLINDAMYCIN. [Concomitant]
     Active Substance: CLINDAMYCIN
  4. SMZ-TMP [Concomitant]
     Active Substance: SULFAMETHOXAZOLE\TRIMETHOPRIM
     Dosage: 800-160 MG
  5. ATENOLOL. [Concomitant]
     Active Substance: ATENOLOL
  6. MODAFINIL. [Concomitant]
     Active Substance: MODAFINIL
  7. HYDROCHLOROTHIAZIDE/TRIAMTERENE [Concomitant]
     Dosage: 75-50 MG
  8. AUBAGIO [Suspect]
     Active Substance: TERIFLUNOMIDE
     Route: 065

REACTIONS (2)
  - Oedema peripheral [Unknown]
  - Peripheral swelling [Unknown]
